FAERS Safety Report 8529682-X (Version None)
Quarter: 2012Q3

REPORT INFORMATION
  Report Type: 
  Country: None (occurrence: None)
  Receive Date: 20120717
  Receipt Date: 20120717
  Transmission Date: 20120928
  Serious: Yes (Hospitalization)
  Sender: FDA-Public Use
  Company Number: None

PATIENT

DRUGS (1)
  1. DALTEPARIN SODIUM [Suspect]
     Dosage: 5.000 UNIT/0.2 ML DALTEPARIN 18.000 UNITS/0.72 ML SYR @ 8:00
     Route: 058
     Dates: start: 20111214

REACTIONS (2)
  - INCORRECT DOSE ADMINISTERED [None]
  - MEDICATION ERROR [None]
